FAERS Safety Report 21760955 (Version 1)
Quarter: 2022Q4

REPORT INFORMATION
  Report Type: Report from Study
  Country: US (occurrence: US)
  Receive Date: 20221221
  Receipt Date: 20221221
  Transmission Date: 20230113
  Serious: No
  Sender: FDA-Public Use
  Company Number: US-ABBVIE-4201270

PATIENT
  Sex: Female

DRUGS (1)
  1. HUMIRA [Suspect]
     Active Substance: ADALIMUMAB
     Indication: Product used for unknown indication
     Route: 058
     Dates: start: 20220201

REACTIONS (5)
  - Psoriatic arthropathy [Recovered/Resolved]
  - Sciatica [Recovered/Resolved]
  - Thrombosis [Recovered/Resolved]
  - Psoriasis [Recovered/Resolved]
  - Vasculitis [Recovered/Resolved]
